FAERS Safety Report 25184231 (Version 1)
Quarter: 2025Q2

REPORT INFORMATION
  Report Type: Spontaneous
  Country: US (occurrence: None)
  Receive Date: 20250409
  Receipt Date: 20250409
  Transmission Date: 20250717
  Serious: Yes (Hospitalization)
  Sender: FDA-CTU
  Company Number: None

PATIENT
  Age: 70 Year
  Sex: Male

DRUGS (1)
  1. ASPIRIN [Suspect]
     Active Substance: ASPIRIN
     Indication: Coronary artery disease

REACTIONS (7)
  - Gastrointestinal haemorrhage [None]
  - Erythema [None]
  - Oedema [None]
  - Peptic ulcer [None]
  - Gastritis [None]
  - Duodenitis [None]
  - Iron deficiency anaemia [None]

NARRATIVE: CASE EVENT DATE: 20250318
